FAERS Safety Report 25330694 (Version 3)
Quarter: 2025Q2

REPORT INFORMATION
  Report Type: Spontaneous
  Country: CA (occurrence: CA)
  Receive Date: 20250519
  Receipt Date: 20250605
  Transmission Date: 20250717
  Serious: Yes (Other)
  Sender: DAIICHI
  Company Number: CA-AstraZeneca-CH-00869114AM

PATIENT
  Sex: Female

DRUGS (1)
  1. TRASTUZUMAB DERUXTECAN [Suspect]
     Active Substance: TRASTUZUMAB DERUXTECAN
     Indication: Product used for unknown indication
     Route: 065
     Dates: start: 20210630

REACTIONS (3)
  - Cataract [Unknown]
  - Cognitive disorder [Unknown]
  - Fall [Unknown]

NARRATIVE: CASE EVENT DATE: 20230101
